FAERS Safety Report 4504252-9 (Version None)
Quarter: 2004Q4

REPORT INFORMATION
  Report Type: 
  Country: None (occurrence: None)
  Receive Date: 20041116
  Receipt Date: 20041116
  Transmission Date: 20050328
  Serious: Yes (Hospitalization)
  Sender: FDA-Public Use
  Company Number: None

PATIENT
  Age: 78 Year
  Sex: Male
  Weight: 52.1637 kg

DRUGS (9)
  1. HCTZ 25/TRIAMTERENE 37.5 [Suspect]
     Indication: HYPERTENSION
     Dosage: 1 DAILY
     Dates: start: 20031101, end: 20040709
  2. ALBUTEROL 90/IPRATROP INH [Concomitant]
  3. ALBUTEROL SO4 INHL [Concomitant]
  4. ALBUTEROL SULFATE [Concomitant]
  5. FLUNISOLIDE INH HYDROXYZINE HCL [Concomitant]
  6. ISOSORBIDE MONONITRATE [Concomitant]
  7. LOVASTATIN [Concomitant]
  8. RANITIDINE [Concomitant]
  9. HYDROXYZINE HCL [Concomitant]

REACTIONS (2)
  - DEHYDRATION [None]
  - SYNCOPE [None]
